FAERS Safety Report 14017676 (Version 1)
Quarter: 2017Q3

REPORT INFORMATION
  Report Type: Spontaneous
  Country: US (occurrence: US)
  Receive Date: 20170927
  Receipt Date: 20170927
  Transmission Date: 20171128
  Serious: No
  Sender: FDA-Public Use
  Company Number: US-DEPOMED, INC.-US-2017DEP001462

PATIENT

DRUGS (4)
  1. GRALISE [Suspect]
     Active Substance: GABAPENTIN
     Dosage: 900 MG, QD
     Route: 048
     Dates: start: 20170629
  2. GRALISE [Suspect]
     Active Substance: GABAPENTIN
     Indication: COMPLEX REGIONAL PAIN SYNDROME
     Dosage: 1200 MG, QD
     Route: 048
     Dates: start: 201407, end: 20170628
  3. NUCYNTA ER [Suspect]
     Active Substance: TAPENTADOL HYDROCHLORIDE
     Indication: COMPLEX REGIONAL PAIN SYNDROME
     Dosage: 100 MG, QD
     Route: 048
     Dates: start: 201507, end: 201601
  4. MORPHINE [Concomitant]
     Active Substance: MORPHINE
     Indication: COMPLEX REGIONAL PAIN SYNDROME
     Dosage: UNK

REACTIONS (3)
  - Drug dose titration not performed [Not Recovered/Not Resolved]
  - Drug titration error [Recovered/Resolved]
  - Product use in unapproved indication [Not Recovered/Not Resolved]

NARRATIVE: CASE EVENT DATE: 201407
